FAERS Safety Report 24421748 (Version 1)
Quarter: 2024Q4

REPORT INFORMATION
  Report Type: Spontaneous
  Country: US (occurrence: US)
  Receive Date: 20241010
  Receipt Date: 20241010
  Transmission Date: 20250115
  Serious: No
  Sender: TAKEDA
  Company Number: US-TAKEDA-2024TUS100257

PATIENT
  Age: 73 Year
  Sex: Female

DRUGS (1)
  1. ENTYVIO [Suspect]
     Active Substance: VEDOLIZUMAB
     Indication: Crohn^s disease
     Dosage: UNK, Q4WEEKS
     Route: 042

REACTIONS (3)
  - Off label use [Unknown]
  - Nasopharyngitis [Unknown]
  - Constipation [Unknown]
